FAERS Safety Report 25532655 (Version 3)
Quarter: 2025Q3

REPORT INFORMATION
  Report Type: Spontaneous
  Country: JP (occurrence: JP)
  Receive Date: 20250709
  Receipt Date: 20250903
  Transmission Date: 20251021
  Serious: Yes (Hospitalization)
  Sender: ASTELLAS
  Company Number: JP-ASTELLAS-2025-AER-036779

PATIENT
  Age: 89 Year
  Sex: Male

DRUGS (4)
  1. XTANDI [Suspect]
     Active Substance: ENZALUTAMIDE
     Indication: Product used for unknown indication
     Route: 048
  2. XTANDI [Suspect]
     Active Substance: ENZALUTAMIDE
     Route: 048
  3. HERBALS [Concomitant]
     Active Substance: HERBALS
     Indication: Malaise
     Dosage: ADMINISTRATION BEFORE BEDTIME
     Route: 065
  4. HERBALS [Concomitant]
     Active Substance: HERBALS
     Indication: Decreased appetite

REACTIONS (3)
  - Malaise [Unknown]
  - Decreased appetite [Recovering/Resolving]
  - Dehydration [Unknown]
